FAERS Safety Report 4675589-8 (Version None)
Quarter: 2005Q2

REPORT INFORMATION
  Report Type: 
  Country: None (occurrence: None)
  Receive Date: 20050527
  Receipt Date: 20050420
  Transmission Date: 20051028
  Serious: No
  Sender: FDA-Public Use
  Company Number: US-BRISTOL-MYERS SQUIBB COMPANY-12941274

PATIENT
  Age: 18 Year
  Sex: Female
  Weight: 72 kg

DRUGS (1)
  1. ABILIFY [Suspect]

REACTIONS (1)
  - WEIGHT INCREASED [None]
